FAERS Safety Report 9859845 (Version 2)
Quarter: 2014Q1

REPORT INFORMATION
  Report Type: Report from Study
  Country: CA (occurrence: CA)
  Receive Date: 20140131
  Receipt Date: 20140131
  Transmission Date: 20141002
  Serious: Yes (Other)
  Sender: FDA-Public Use
  Company Number: CA-ABBVIE-14P-028-1195780-00

PATIENT
  Sex: Female
  Weight: 56 kg

DRUGS (1)
  1. HUMIRA [Suspect]
     Indication: ARTHRITIS
     Route: 058
     Dates: start: 201110, end: 20130809

REACTIONS (3)
  - Cardiac disorder [Not Recovered/Not Resolved]
  - Cardiac failure [Unknown]
  - Drug ineffective [Unknown]
